FAERS Safety Report 6651412-7 (Version None)
Quarter: 2010Q1

REPORT INFORMATION
  Report Type: 
  Country: None (occurrence: None)
  Receive Date: 20100325
  Receipt Date: 20100312
  Transmission Date: 20100710
  Serious: Yes (Hospitalization)
  Sender: FDA-Public Use
  Company Number: JP-ELI_LILLY_AND_COMPANY-JP201003005044

PATIENT
  Age: 32 Year
  Sex: Male

DRUGS (3)
  1. ZYPREXA [Suspect]
     Indication: SCHIZOPHRENIA, PARANOID TYPE
     Dosage: 20 MG, DAILY (1/D)
     Route: 048
  2. ZYPREXA [Suspect]
     Dosage: 40 MG, DAILY (1/D)
     Route: 048
  3. ZOTEPINE [Concomitant]
     Indication: SCHIZOPHRENIA, PARANOID TYPE
     Dosage: 400 MG, DAILY (1/D)
     Route: 065

REACTIONS (7)
  - HALLUCINATION, AUDITORY [None]
  - HYPONATRAEMIA [None]
  - INCONTINENCE [None]
  - OVERDOSE [None]
  - PERSECUTORY DELUSION [None]
  - POLYDIPSIA [None]
  - VOMITING [None]
